FAERS Safety Report 16170924 (Version 1)
Quarter: 2019Q2

REPORT INFORMATION
  Report Type: Report from Study
  Country: CA (occurrence: CA)
  Receive Date: 20190408
  Receipt Date: 20190408
  Transmission Date: 20190711
  Serious: Yes (Other)
  Sender: FDA-Public Use
  Company Number: CA-JNJFOC-20190410168

PATIENT
  Age: 14 Year
  Sex: Male
  Weight: 40.3 kg

DRUGS (1)
  1. REMICADE [Suspect]
     Active Substance: INFLIXIMAB
     Indication: CROHN^S DISEASE
     Dosage: STRENGTH = 100 MG
     Route: 042
     Dates: start: 20181221

REACTIONS (4)
  - Mucous stools [Unknown]
  - Proctalgia [Not Recovered/Not Resolved]
  - Haematochezia [Unknown]
  - Chromaturia [Unknown]

NARRATIVE: CASE EVENT DATE: 201903
